FAERS Safety Report 21507899 (Version 4)
Quarter: 2023Q1

REPORT INFORMATION
  Report Type: Spontaneous
  Country: CH (occurrence: CH)
  Receive Date: 20221026
  Receipt Date: 20230103
  Transmission Date: 20230418
  Serious: Yes (Hospitalization, Other)
  Sender: FDA-Public Use
  Company Number: CH-TEVA-2022-CH-2818592

PATIENT
  Age: 45 Year
  Sex: Female

DRUGS (3)
  1. DOXYCYCLINE [Suspect]
     Active Substance: DOXYCYCLINE
     Indication: Antibiotic therapy
     Dosage: 200 MILLIGRAM DAILY;
     Route: 048
     Dates: start: 20210205, end: 20210210
  2. CEFTRIAXONE [Suspect]
     Active Substance: CEFTRIAXONE
     Indication: Antibiotic therapy
     Dosage: 2 GRAM DAILY;
     Route: 042
     Dates: start: 20210205, end: 20210211
  3. METRONIDAZOLE [Suspect]
     Active Substance: METRONIDAZOLE
     Indication: Antibiotic therapy
     Dosage: 1000 MILLIGRAM DAILY;
     Route: 048
     Dates: start: 20210205, end: 20210212

REACTIONS (7)
  - Electrocardiogram repolarisation abnormality [Recovered/Resolved]
  - Troponin increased [Recovered/Resolved]
  - Erythema multiforme [Recovered/Resolved]
  - Fluid retention [Recovered/Resolved]
  - Dyspnoea [Recovered/Resolved]
  - Hypotension [Recovered/Resolved]
  - Petechiae [Recovered/Resolved]

NARRATIVE: CASE EVENT DATE: 20210206
